FAERS Safety Report 9064810 (Version 1)
Quarter: 2013Q1

REPORT INFORMATION
  Report Type: Report from Study
  Country: GB (occurrence: GB)
  Receive Date: 20130130
  Receipt Date: 20130130
  Transmission Date: 20140127
  Serious: Yes (Hospitalization)
  Sender: FDA-Public Use
  Company Number: GB-ROCHE-1180733

PATIENT
  Age: 43 Year
  Sex: Female
  Weight: 70.1 kg

DRUGS (5)
  1. TRASTUZUMAB [Suspect]
     Indication: BREAST CANCER
     Dosage: LOADING DOSE
     Route: 042
  2. TRASTUZUMAB [Suspect]
     Dosage: MAINTENANCE DOSE, DATE OF LAST DOSE PRIOR TO SAE: 2/JAN/2013
     Route: 042
  3. DOCETAXEL [Suspect]
     Indication: BREAST CANCER
     Route: 065
  4. CITALOPRAM [Concomitant]
     Route: 065
  5. PERTUZUMAB [Suspect]
     Indication: BREAST CANCER
     Dosage: DATE OF LAST DOSE PRIOR TO SAE: 2/JAN/2013
     Route: 042

REACTIONS (1)
  - Lower respiratory tract infection [Recovered/Resolved]
